FAERS Safety Report 4551194-9 (Version None)
Quarter: 2005Q1

REPORT INFORMATION
  Report Type: 
  Country: None (occurrence: None)
  Receive Date: 20050110
  Receipt Date: 20041020
  Transmission Date: 20050727
  Serious: Yes (Hospitalization, Disabling, Other)
  Sender: FDA-Public Use
  Company Number: 2003-05-4780

PATIENT
  Age: 26 Year
  Sex: Female
  Weight: 77.1115 kg

DRUGS (2)
  1. CORICIDIN D SRT [Suspect]
     Indication: HYPERSENSITIVITY
     Dosage: 2 PILLS ORAL
     Route: 048
     Dates: start: 20001031, end: 20001031
  2. ORAL CONTRACEPTIVE (NOS) [Concomitant]

REACTIONS (1)
  - ISCHAEMIC STROKE [None]
